FAERS Safety Report 8882582 (Version 2)
Quarter: 2012Q4

REPORT INFORMATION
  Report Type: 
  Country: US (occurrence: US)
  Receive Date: 20121102
  Receipt Date: 20121124
  Transmission Date: 20130627
  Serious: Yes (Other)
  Sender: FDA-Public Use
  Company Number: PHEH2012US021445

PATIENT
  Age: 59 Year
  Sex: Female

DRUGS (1)
  1. RECLAST [Suspect]
     Indication: OSTEOPOROSIS
     Dosage: 5 mg, once yearly
     Route: 042
     Dates: start: 20121016

REACTIONS (2)
  - Colitis ulcerative [Recovering/Resolving]
  - Concomitant disease progression [Recovering/Resolving]
